FAERS Safety Report 5897150-X (Version None)
Quarter: 2008Q3

REPORT INFORMATION
  Report Type: 
  Country: None (occurrence: None)
  Receive Date: 20080924
  Receipt Date: 20080422
  Transmission Date: 20090109
  Serious: Yes (Other)
  Sender: FDA-Public Use
  Company Number: US-ASTRAZENECA-2008UW08250

PATIENT
  Age: 16 Year
  Sex: Female

DRUGS (3)
  1. SEROQUEL [Suspect]
     Dosage: 100-200 MG QHS
     Route: 048
  2. LITHIUM CARBONATE [Concomitant]
     Dosage: 900
  3. ABILIFY [Concomitant]
     Dosage: 15 MG

REACTIONS (1)
  - BLOOD TRIGLYCERIDES INCREASED [None]
